FAERS Safety Report 13808773 (Version 2)
Quarter: 2017Q3

REPORT INFORMATION
  Report Type: Report from Study
  Country: CA (occurrence: US)
  Receive Date: 20170728
  Receipt Date: 20170729
  Transmission Date: 20171127
  Serious: No
  Sender: FDA-Public Use
  Company Number: CA-AMGEN-USASL2017062766

PATIENT
  Age: 70 Year
  Sex: Female

DRUGS (2)
  1. CELEBREX [Concomitant]
     Active Substance: CELECOXIB
     Dosage: UNK UNK, AS NECESSARY
  2. REPATHA [Suspect]
     Active Substance: EVOLOCUMAB
     Indication: TYPE IIA HYPERLIPIDAEMIA
     Dosage: 140 MG/ML, UNK
     Route: 065
     Dates: start: 20170325

REACTIONS (4)
  - Adverse event [Unknown]
  - Drug dose omission [Unknown]
  - Fatigue [Unknown]
  - Extra dose administered [Unknown]
